FAERS Safety Report 14206408 (Version 9)
Quarter: 2021Q2

REPORT INFORMATION
  Report Type: Spontaneous
  Country: US (occurrence: US)
  Receive Date: 20171120
  Receipt Date: 20210407
  Transmission Date: 20210716
  Serious: Yes (Other)
  Sender: FDA-Public Use
  Company Number: US-PFIZER INC-2017498067

PATIENT
  Age: 82 Year
  Sex: Female
  Weight: 76 kg

DRUGS (2)
  1. XELJANZ [Suspect]
     Active Substance: TOFACITINIB CITRATE
     Indication: FELTY^S SYNDROME
     Dosage: 5 MG, 2X/DAY
     Dates: start: 20150722
  2. XELJANZ [Suspect]
     Active Substance: TOFACITINIB CITRATE
     Indication: RHEUMATOID ARTHRITIS
     Dosage: 10 MG, DAILY

REACTIONS (6)
  - Cerebrovascular accident [Unknown]
  - Thrombosis [Unknown]
  - Decreased immune responsiveness [Unknown]
  - Memory impairment [Unknown]
  - Hypoacusis [Unknown]
  - Transient ischaemic attack [Unknown]
